FAERS Safety Report 19725987 (Version 1)
Quarter: 2021Q3

REPORT INFORMATION
  Report Type: Spontaneous
  Country: US (occurrence: US)
  Receive Date: 20210820
  Receipt Date: 20210820
  Transmission Date: 20211014
  Serious: No
  Sender: FDA-Public Use
  Company Number: US-ORGANON-O2108USA000525

PATIENT
  Age: 70 Year
  Sex: Female

DRUGS (4)
  1. KETAMINE [Concomitant]
     Active Substance: KETAMINE
     Dosage: TWICE DAILY AS NEEDED
     Route: 061
  2. REMERON [Suspect]
     Active Substance: MIRTAZAPINE
     Indication: SLEEP DISORDER
     Dosage: 15 MG EVERY NIGHT AT BEDTIME
  3. AMITRIPTYLINE [Concomitant]
     Active Substance: AMITRIPTYLINE
     Dosage: UNK
     Route: 061
  4. NALTREXONE [Concomitant]
     Active Substance: NALTREXONE
     Dosage: 1.5 MG 3 TIMES DAILY

REACTIONS (1)
  - Product use in unapproved indication [Unknown]
